FAERS Safety Report 11544569 (Version 1)
Quarter: 2015Q3

REPORT INFORMATION
  Report Type: Spontaneous
  Country: US (occurrence: None)
  Receive Date: 20150923
  Receipt Date: 20150923
  Transmission Date: 20151125
  Serious: Yes (Other)
  Sender: FDA-Public Use
  Company Number: None

PATIENT
  Age: 68 Year
  Sex: Male
  Weight: 117.94 kg

DRUGS (7)
  1. SIMVASTATIN. [Concomitant]
     Active Substance: SIMVASTATIN
  2. ALLOPURINOL. [Concomitant]
     Active Substance: ALLOPURINOL
  3. HERBALS [Concomitant]
     Active Substance: HERBALS
  4. ATENOLOL. [Concomitant]
     Active Substance: ATENOLOL
  5. ENALAPRIL 20MG WOCKHARDT [Suspect]
     Active Substance: ENALAPRIL
     Indication: BLOOD PRESSURE INADEQUATELY CONTROLLED
     Route: 048
  6. SUPPLEMENTS [Concomitant]
     Active Substance: UNSPECIFIED INGREDIENT
  7. VITAMINS [Concomitant]
     Active Substance: VITAMINS

REACTIONS (3)
  - Product quality issue [None]
  - Product substitution issue [None]
  - Blood pressure increased [None]

NARRATIVE: CASE EVENT DATE: 20150422
